FAERS Safety Report 6976194-0 (Version None)
Quarter: 2010Q3

REPORT INFORMATION
  Report Type: 
  Country: None (occurrence: None)
  Receive Date: 20100824
  Receipt Date: 20100720
  Transmission Date: 20110219
  Serious: No
  Sender: FDA-Public Use
  Company Number: 311696

PATIENT
  Age: 47 Year
  Sex: Female
  Weight: 83.9 kg

DRUGS (2)
  1. VICTOZA [Suspect]
     Indication: TYPE 2 DIABETES MELLITUS
     Dosage: 0.6 MG, QD, SUBCUTANEOUS ; 0.6 MG, QD, SUBCUTANEOUS
     Route: 058
     Dates: start: 20100706, end: 20100706
  2. VICTOZA [Suspect]
     Indication: TYPE 2 DIABETES MELLITUS
     Dosage: 0.6 MG, QD, SUBCUTANEOUS ; 0.6 MG, QD, SUBCUTANEOUS
     Route: 058
     Dates: start: 20100709, end: 20100711

REACTIONS (5)
  - ABDOMINAL PAIN [None]
  - DIARRHOEA [None]
  - GALLBLADDER DISORDER [None]
  - NAUSEA [None]
  - VOMITING [None]
